FAERS Safety Report 11573718 (Version 2)
Quarter: 2015Q4

REPORT INFORMATION
  Report Type: Spontaneous
  Country: ES (occurrence: ES)
  Receive Date: 20150929
  Receipt Date: 20151119
  Transmission Date: 20160304
  Serious: Yes (Death, Hospitalization, Disabling)
  Sender: FDA-Public Use
  Company Number: ES-EXELIXIS-CABO-15005550

PATIENT
  Age: 34 Year
  Sex: Female
  Weight: 50 kg

DRUGS (3)
  1. COMETRIQ [Suspect]
     Active Substance: CABOZANTINIB S-MALATE
     Dosage: 80 MG, QD
     Route: 048
     Dates: start: 20150524, end: 20150530
  2. COMETRIQ [Suspect]
     Active Substance: CABOZANTINIB S-MALATE
     Indication: INTESTINAL ADENOCARCINOMA
     Dosage: 100 MG, QD
     Route: 048
     Dates: start: 20150519, end: 20150521
  3. COMETRIQ [Suspect]
     Active Substance: CABOZANTINIB S-MALATE
     Dosage: 100 MG, QD
     Route: 048
     Dates: start: 20150522, end: 20150523

REACTIONS (8)
  - Pulmonary hypertension [Unknown]
  - Asthenia [Recovering/Resolving]
  - Off label use [Unknown]
  - Malignant neoplasm progression [Fatal]
  - Tachycardia [Recovering/Resolving]
  - Lymphangitis [Unknown]
  - Electrocardiogram QT prolonged [Recovering/Resolving]
  - Drug ineffective [Unknown]

NARRATIVE: CASE EVENT DATE: 201505
